FAERS Safety Report 9718402 (Version 1)
Quarter: 2013Q4

REPORT INFORMATION
  Report Type: Not Available
  Country: US (occurrence: US)
  Receive Date: 20131125
  Receipt Date: 20131125
  Transmission Date: 20140711
  Serious: No
  Sender: FDA-Public Use
  Company Number: US-VIVUS-2013V1000583

PATIENT
  Age: 54 Year
  Sex: Female
  Weight: 107.6 kg

DRUGS (7)
  1. QSYMIA 11.25MG/69MG [Suspect]
     Indication: WEIGHT DECREASED
     Route: 048
     Dates: start: 2013
  2. QSYMIA 7.5MG/46MG [Suspect]
     Indication: WEIGHT DECREASED
     Route: 048
  3. QSYMIA 3.75MG/23MG [Suspect]
     Indication: WEIGHT DECREASED
     Route: 048
  4. ROBAXIN [Concomitant]
     Indication: MUSCLE SPASMS
     Route: 048
     Dates: start: 2011
  5. PERCOCET [Concomitant]
     Indication: BACK PAIN
     Dosage: 5MG/325MG
     Route: 048
     Dates: start: 2011
  6. TRAMADOL [Concomitant]
     Indication: BACK PAIN
     Route: 048
     Dates: start: 2013
  7. UNIRETIC [Concomitant]
     Indication: HYPERTENSION
     Route: 048
     Dates: start: 2011

REACTIONS (2)
  - Hypoaesthesia [Not Recovered/Not Resolved]
  - Paraesthesia [Not Recovered/Not Resolved]
